FAERS Safety Report 16233990 (Version 1)
Quarter: 2019Q2

REPORT INFORMATION
  Report Type: Spontaneous
  Country: ES (occurrence: ES)
  Receive Date: 20190424
  Receipt Date: 20190424
  Transmission Date: 20190711
  Serious: Yes (Life-Threatening, Hospitalization, Disabling, Other)
  Sender: FDA-Public Use
  Company Number: ES-GILEAD-2019-0403518

PATIENT
  Age: 68 Year
  Sex: Male

DRUGS (1)
  1. IDELALISIB [Suspect]
     Active Substance: IDELALISIB
     Indication: PRODUCT USED FOR UNKNOWN INDICATION
     Route: 065
     Dates: start: 20190401, end: 20190403

REACTIONS (4)
  - Cardiac failure [Recovering/Resolving]
  - Diarrhoea [Recovering/Resolving]
  - Atrial fibrillation [Recovering/Resolving]
  - Pneumonitis [Recovering/Resolving]

NARRATIVE: CASE EVENT DATE: 20190403
